FAERS Safety Report 13498096 (Version 3)
Quarter: 2017Q4

REPORT INFORMATION
  Report Type: Report from Study
  Country: JP (occurrence: JP)
  Receive Date: 20170428
  Receipt Date: 20171013
  Transmission Date: 20180320
  Serious: Yes (Hospitalization, Other)
  Sender: FDA-Public Use
  Company Number: JP-BRISTOL-MYERS SQUIBB COMPANY-21466743

PATIENT
  Age: 74 Year
  Sex: Male
  Weight: 81 kg

DRUGS (42)
  1. APIXABAN [Suspect]
     Active Substance: APIXABAN
     Indication: PRODUCT USED FOR UNKNOWN INDICATION
     Dosage: 5 MG, BID
     Route: 048
     Dates: start: 20150420, end: 20160516
  2. APIXABAN [Suspect]
     Active Substance: APIXABAN
     Indication: PRODUCT USED FOR UNKNOWN INDICATION
     Dosage: 5 MG, BID
     Route: 048
     Dates: start: 20160518, end: 20160608
  3. LOXOPROFEN [Concomitant]
     Active Substance: LOXOPROFEN
     Indication: ARTHRALGIA
     Route: 065
  4. SELBEX [Concomitant]
     Active Substance: TEPRENONE
     Indication: OSTEOARTHRITIS
     Route: 065
  5. SAMSCA [Concomitant]
     Active Substance: TOLVAPTAN
     Indication: PLEURISY
     Route: 065
  6. PURSENNID                          /00142207/ [Concomitant]
     Active Substance: SENNA LEAF
     Indication: PROPHYLAXIS
     Dosage: UNK
     Route: 048
     Dates: start: 20160227, end: 20160227
  7. DIART [Concomitant]
     Active Substance: AZOSEMIDE
     Indication: PRODUCT USED FOR UNKNOWN INDICATION
     Route: 065
  8. MUBEN [Concomitant]
     Indication: PRODUCT USED FOR UNKNOWN INDICATION
     Dosage: UNK
     Route: 048
     Dates: start: 20160328, end: 20160328
  9. FLUITRAN [Concomitant]
     Active Substance: TRICHLORMETHIAZIDE
     Indication: HYPERTENSION
     Route: 065
  10. MAGMITT [Concomitant]
     Active Substance: MAGNESIUM OXIDE
     Indication: CONSTIPATION
     Route: 065
  11. NATRIX [Concomitant]
     Active Substance: INDAPAMIDE
     Indication: CARDIAC FAILURE
     Route: 065
  12. COVERSYL                           /00790702/ [Concomitant]
     Active Substance: PERINDOPRIL
     Indication: CARDIAC FAILURE
     Route: 065
  13. SELBEX [Concomitant]
     Active Substance: TEPRENONE
     Indication: GASTRITIS
     Dosage: 100 MG, QD
     Route: 048
     Dates: end: 20160205
  14. CALONAL [Concomitant]
     Active Substance: ACETAMINOPHEN
     Indication: PLEURISY
     Dosage: 400 MG, UNK
     Route: 065
     Dates: end: 20150104
  15. CALONAL [Concomitant]
     Active Substance: ACETAMINOPHEN
     Indication: CHEST PAIN
     Route: 065
  16. LASIX [Concomitant]
     Active Substance: FUROSEMIDE
     Indication: CARDIAC FAILURE
     Route: 065
  17. FLOMOX                             /01418603/ [Concomitant]
     Active Substance: CEFCAPENE PIVOXIL HYDROCHLORIDE HYDRATE
     Indication: BRONCHITIS
     Dosage: 300 MG, QD
     Route: 048
     Dates: start: 20150421, end: 20150425
  18. PL [Concomitant]
     Active Substance: ACETAMINOPHEN\CAFFEINE\PROMETHAZINE\SALICYLAMIDE
     Indication: VIRAL UPPER RESPIRATORY TRACT INFECTION
     Dosage: 1 G, TID
     Route: 048
     Dates: start: 20150406, end: 20150412
  19. CEFAZOLIN SODIUM. [Concomitant]
     Active Substance: CEFAZOLIN SODIUM
     Indication: PROPHYLAXIS
     Dosage: 4 G, QD
     Route: 042
     Dates: start: 20160531, end: 20160616
  20. APIXABAN [Suspect]
     Active Substance: APIXABAN
     Indication: PRODUCT USED FOR UNKNOWN INDICATION
     Dosage: 5 MG, BID
     Route: 048
     Dates: start: 20160624
  21. ALDACTONE A [Concomitant]
     Active Substance: SPIRONOLACTONE
     Indication: PRODUCT USED FOR UNKNOWN INDICATION
     Route: 065
  22. MEDICON                            /00048102/ [Concomitant]
     Active Substance: DEXTROMETHORPHAN HYDROBROMIDE
     Indication: VIRAL UPPER RESPIRATORY TRACT INFECTION
     Dosage: 15 MG, TID
     Route: 048
     Dates: start: 20150414, end: 20150421
  23. HEPARIN SODIUM. [Concomitant]
     Active Substance: HEPARIN SODIUM
     Indication: PRODUCT USED FOR UNKNOWN INDICATION
     Dosage: 10 ML, QD
     Route: 042
     Dates: start: 20150419, end: 20150420
  24. HEPARIN SODIUM. [Concomitant]
     Active Substance: HEPARIN SODIUM
     Indication: PRODUCT USED FOR UNKNOWN INDICATION
     Dosage: 10 ML, QD
     Route: 042
     Dates: start: 20150420, end: 20150421
  25. ALDACTONE [Concomitant]
     Active Substance: SPIRONOLACTONE
     Indication: CARDIAC FAILURE
     Dosage: UNK
     Route: 065
     Dates: end: 20150423
  26. SAMSCA [Concomitant]
     Active Substance: TOLVAPTAN
     Indication: CARDIAC FAILURE
     Route: 065
  27. INTENURSE [Concomitant]
     Indication: OSTEOARTHRITIS
     Dosage: 140 MG, QD
     Route: 062
     Dates: start: 20160205
  28. ASPIRIN                            /00002701/ [Suspect]
     Active Substance: ASPIRIN
     Indication: MYOCARDIAL INFARCTION
     Dosage: 81 MG, UNK
     Route: 048
  29. ARTIST [Concomitant]
     Active Substance: CARVEDILOL
     Indication: CARDIAC FAILURE
     Dosage: 1.875 MG, BID
     Route: 048
     Dates: start: 20141110
  30. FEBUXOSTAT. [Concomitant]
     Active Substance: FEBUXOSTAT
     Indication: HYPERURICAEMIA
     Route: 065
  31. CALONAL [Concomitant]
     Active Substance: ACETAMINOPHEN
     Indication: ARTHRALGIA
     Route: 065
  32. AMBROXOL HYDROCHLORIDE [Concomitant]
     Active Substance: AMBROXOL HYDROCHLORIDE
     Indication: VIRAL UPPER RESPIRATORY TRACT INFECTION
     Dosage: 45 MG, QD
     Route: 048
     Dates: start: 20150406, end: 20150510
  33. MUBEN [Concomitant]
     Indication: PROPHYLAXIS
     Dosage: 500 ML, QD
     Route: 048
     Dates: start: 20160228, end: 20160228
  34. LOXOPROFEN SODIUM [Concomitant]
     Active Substance: LOXOPROFEN SODIUM
     Indication: OSTEOARTHRITIS
     Dosage: 120 MG, QD
     Route: 048
     Dates: end: 20170205
  35. APIXABAN [Suspect]
     Active Substance: APIXABAN
     Indication: THROMBOSIS PROPHYLAXIS
     Dosage: 5 MG, BID
     Route: 048
     Dates: start: 20140617, end: 20150419
  36. FLUITRAN [Concomitant]
     Active Substance: TRICHLORMETHIAZIDE
     Indication: CARDIAC FAILURE
     Route: 065
  37. HOKUNALIN                          /00654901/ [Concomitant]
     Active Substance: TULOBUTEROL
     Indication: VIRAL UPPER RESPIRATORY TRACT INFECTION
     Dosage: UNK
     Route: 062
     Dates: start: 20150406, end: 20150412
  38. TAKEPRON [Concomitant]
     Active Substance: LANSOPRAZOLE
     Indication: PRODUCT USED FOR UNKNOWN INDICATION
     Route: 065
  39. NATRIX [Concomitant]
     Active Substance: INDAPAMIDE
     Indication: PLEURISY
     Route: 065
  40. FENTANYL. [Concomitant]
     Active Substance: FENTANYL
     Indication: PREOPERATIVE CARE
     Route: 065
  41. PURSENNID                          /00142207/ [Concomitant]
     Active Substance: SENNA LEAF
     Indication: PRODUCT USED FOR UNKNOWN INDICATION
     Dosage: UNK
     Route: 048
     Dates: start: 20160327, end: 20160327
  42. ALINAMIN-F                         /00257802/ [Concomitant]
     Indication: ARTHRALGIA
     Dosage: 25 MG, TID
     Route: 048
     Dates: start: 2015

REACTIONS (7)
  - Osteoarthritis [Recovering/Resolving]
  - Suture insertion [Recovered/Resolved]
  - Debridement [Unknown]
  - Nasopharyngitis [Recovered/Resolved]
  - Large intestine polyp [Recovered/Resolved]
  - Epistaxis [Recovering/Resolving]
  - Joint arthroplasty [Unknown]

NARRATIVE: CASE EVENT DATE: 20140818
